FAERS Safety Report 10142225 (Version 1)
Quarter: 2014Q2

REPORT INFORMATION
  Report Type: Spontaneous
  Country: US (occurrence: US)
  Receive Date: 20140429
  Receipt Date: 20140429
  Transmission Date: 20141212
  Serious: Yes (Death)
  Sender: FDA-Public Use
  Company Number: US-AMGEN INC.-USASP2014030448

PATIENT
  Age: 43 Year
  Sex: Male

DRUGS (7)
  1. ENBREL [Suspect]
     Indication: PRODUCT USED FOR UNKNOWN INDICATION
     Dosage: 50 MG, QWK
     Route: 058
  2. AMBIEN [Concomitant]
     Dosage: 10 MG, UNK
  3. CLOBETASOL [Concomitant]
     Dosage: 0.05 % UNK, UNK
  4. TRIAMCINOLON                       /00031901/ [Concomitant]
     Dosage: UNK, 0.1%
  5. NEXIUM                             /01479302/ [Concomitant]
     Dosage: 20 MG, UNK
  6. PENICILLIN                         /00000901/ [Concomitant]
     Dosage: 5 MU UNK, UNK
  7. DERMA-SMOOTHE-FS [Concomitant]
     Dosage: UNK

REACTIONS (1)
  - Death [Fatal]
